FAERS Safety Report 21598377 (Version 1)
Quarter: 2022Q4

REPORT INFORMATION
  Report Type: Report from Study
  Country: US (occurrence: US)
  Receive Date: 20221115
  Receipt Date: 20221115
  Transmission Date: 20230112
  Serious: No
  Sender: FDA-Public Use
  Company Number: US-ABBVIE-4136319

PATIENT
  Sex: Female

DRUGS (4)
  1. HUMIRA [Suspect]
     Active Substance: ADALIMUMAB
     Indication: Ankylosing spondylitis
     Dosage: 40 MG
     Route: 058
  2. Pfizer BioNTech COVID-19 vaccine (Tozinameran) [Concomitant]
     Indication: COVID-19 immunisation
     Dosage: FIRST DOSE?ONE IN ONCE
     Route: 030
     Dates: start: 20201218, end: 20201218
  3. Pfizer BioNTech COVID-19 vaccine (Tozinameran) [Concomitant]
     Indication: COVID-19 immunisation
     Dosage: SECOND DOSE?ONE IN ONCE
     Route: 030
     Dates: start: 20210108, end: 20210108
  4. Pfizer BioNTech COVID-19 vaccine (Tozinameran) [Concomitant]
     Indication: COVID-19 immunisation
     Dosage: BOOSTER DOSE?ONE IN ONCE
     Route: 030
     Dates: start: 20220105, end: 20220105

REACTIONS (4)
  - Injection site swelling [Unknown]
  - Injection site pruritus [Unknown]
  - Injection site nodule [Unknown]
  - Injection site urticaria [Unknown]
